FAERS Safety Report 9780443 (Version 4)
Quarter: 2014Q2

REPORT INFORMATION
  Report Type: Spontaneous
  Country: US (occurrence: US)
  Receive Date: 20131224
  Receipt Date: 20140417
  Transmission Date: 20141212
  Serious: No
  Sender: FDA-Public Use
  Company Number: US-BIOGENIDEC-2013BI102856

PATIENT
  Age: 49 Year
  Sex: Male

DRUGS (8)
  1. AVONEX [Suspect]
     Indication: MULTIPLE SCLEROSIS
     Route: 030
     Dates: start: 20131011
  2. XANAX [Concomitant]
     Indication: DEPRESSION
  3. XANAX [Concomitant]
     Indication: ANXIETY
  4. GABAPENTIN [Concomitant]
     Indication: CONVULSION
  5. GABAPENTIN [Concomitant]
     Indication: INITIAL INSOMNIA
  6. OXYCODONE [Concomitant]
  7. ALPRAZOLAM [Concomitant]
  8. BACLOFEN [Concomitant]

REACTIONS (17)
  - Stress [Recovered/Resolved]
  - Muscle atrophy [Not Recovered/Not Resolved]
  - Hypoaesthesia [Not Recovered/Not Resolved]
  - Dry skin [Not Recovered/Not Resolved]
  - Skin exfoliation [Not Recovered/Not Resolved]
  - Lethargy [Recovered/Resolved]
  - Mobility decreased [Recovered/Resolved]
  - Influenza like illness [Recovered/Resolved]
  - Initial insomnia [Recovered/Resolved]
  - Depression [Not Recovered/Not Resolved]
  - Alopecia [Not Recovered/Not Resolved]
  - Musculoskeletal pain [Not Recovered/Not Resolved]
  - Injection site pain [Recovered/Resolved with Sequelae]
  - Muscular weakness [Not Recovered/Not Resolved]
  - Malaise [Not Recovered/Not Resolved]
  - Pain [Not Recovered/Not Resolved]
  - Aggression [Unknown]
